FAERS Safety Report 18913047 (Version 2)
Quarter: 2021Q2

REPORT INFORMATION
  Report Type: Spontaneous
  Country: CH (occurrence: CH)
  Receive Date: 20210218
  Receipt Date: 20210507
  Transmission Date: 20210717
  Serious: Yes (Other)
  Sender: FDA-Public Use
  Company Number: CH-ELI_LILLY_AND_COMPANY-CH202102003143

PATIENT
  Age: 62 Year
  Sex: Male
  Weight: 67 kg

DRUGS (5)
  1. KEYTRUDA [Suspect]
     Active Substance: PEMBROLIZUMAB
     Indication: LUNG ADENOCARCINOMA
     Dosage: 200 MG, EVERY THREE WEEKS
     Route: 065
     Dates: start: 20181205
  2. ALIMTA [Suspect]
     Active Substance: PEMETREXED DISODIUM
     Indication: LUNG ADENOCARCINOMA
     Dosage: 500 MG/M2, EVERY THREE WEEKS
     Route: 042
     Dates: start: 20180928, end: 20200130
  3. ELIQUIS [Concomitant]
     Active Substance: APIXABAN
     Indication: BRAIN INJURY
     Dosage: 5 MG, UNKNOWN
     Route: 065
     Dates: start: 201809
  4. PLATIN [CISPLATIN] [Concomitant]
     Active Substance: CISPLATIN
     Indication: LUNG ADENOCARCINOMA
     Dosage: UNK, UNKNOWN
     Route: 065
  5. SPIOLTO [Concomitant]
     Active Substance: OLODATEROL HYDROCHLORIDE\TIOTROPIUM BROMIDE MONOHYDRATE
     Indication: CHRONIC OBSTRUCTIVE PULMONARY DISEASE
     Dosage: 2.5 MG, UNKNOWN
     Route: 055

REACTIONS (4)
  - Off label use [Unknown]
  - Autoimmune hepatitis [Recovered/Resolved]
  - Immune-mediated lung disease [Recovered/Resolved]
  - Malignant neoplasm progression [Unknown]
